FAERS Safety Report 4478963-8 (Version None)
Quarter: 2004Q4

REPORT INFORMATION
  Report Type: 
  Country: None (occurrence: None)
  Receive Date: 20041015
  Receipt Date: 20041006
  Transmission Date: 20050328
  Serious: Yes (Life-Threatening)
  Sender: FDA-Public Use
  Company Number: HQWYE550806OCT04

PATIENT
  Age: 33 Year
  Sex: Female

DRUGS (3)
  1. CEFIXORAL (CEFIXIME) [Suspect]
     Indication: OTITIS EXTERNA
     Dosage: 400 MG SINGLE DOSE; ORAL
     Route: 048
     Dates: start: 20040929, end: 20040929
  2. DIANE (CYPROTERONE ACETATE/ETHINYLESTRADIOL) [Concomitant]
  3. ZOLOFT [Concomitant]

REACTIONS (3)
  - BRONCHOSTENOSIS [None]
  - HYPOTENSION [None]
  - PRURITUS [None]
